FAERS Safety Report 10978938 (Version 1)
Quarter: 2015Q2

REPORT INFORMATION
  Report Type: Spontaneous
  Country: US (occurrence: US)
  Receive Date: 20150402
  Receipt Date: 20150402
  Transmission Date: 20150821
  Serious: No
  Sender: FDA-Public Use
  Company Number: US-PFIZER INC-2015112374

PATIENT
  Age: 72 Year
  Sex: Female

DRUGS (1)
  1. TECTA [Suspect]
     Active Substance: PANTOPRAZOLE MAGNESIUM
     Dosage: UNK
     Route: 048

REACTIONS (7)
  - Insomnia [Unknown]
  - Myalgia [Unknown]
  - Vision blurred [Unknown]
  - Dysgeusia [Unknown]
  - Visual impairment [Unknown]
  - Dizziness [Unknown]
  - Nausea [Unknown]
